FAERS Safety Report 8333216-2 (Version None)
Quarter: 2012Q2

REPORT INFORMATION
  Report Type: 
  Country: None (occurrence: None)
  Receive Date: 20120503
  Receipt Date: 20120427
  Transmission Date: 20120825
  Serious: Yes (Hospitalization)
  Sender: FDA-Public Use
  Company Number: HR-PFIZER INC-2012106046

PATIENT
  Age: 43 Year
  Sex: Male

DRUGS (2)
  1. FLUOROURACIL [Suspect]
     Indication: TONSIL CANCER
     Dosage: 200 MG, CYCLIC
     Route: 042
     Dates: start: 20120109
  2. CISPLATIN [Suspect]
     Indication: TONSIL CANCER
     Dosage: 200 MG, CYCLIC
     Route: 042
     Dates: start: 20120109

REACTIONS (4)
  - MALAISE [None]
  - STOMATITIS [None]
  - PYREXIA [None]
  - APHTHOUS STOMATITIS [None]
